FAERS Safety Report 8067067-3 (Version None)
Quarter: 2012Q1

REPORT INFORMATION
  Report Type: 
  Country: None (occurrence: None)
  Receive Date: 20120124
  Receipt Date: 20120112
  Transmission Date: 20120608
  Serious: Yes (Other)
  Sender: FDA-Public Use
  Company Number: CA-ROCHE-1032037

PATIENT
  Sex: Female

DRUGS (4)
  1. QVAR 40 [Concomitant]
  2. VENTOLIN [Concomitant]
  3. XOLAIR [Suspect]
     Indication: ASTHMA
     Route: 058
     Dates: start: 20091209
  4. ADVAIR DISKUS 100/50 [Concomitant]

REACTIONS (10)
  - HEADACHE [None]
  - ARRHYTHMIA [None]
  - DYSPNOEA [None]
  - HOT FLUSH [None]
  - PRODUCTIVE COUGH [None]
  - PALPITATIONS [None]
  - TACHYCARDIA [None]
  - DIZZINESS [None]
  - VISUAL IMPAIRMENT [None]
  - FATIGUE [None]
